FAERS Safety Report 4991388-1 (Version None)
Quarter: 2006Q2

REPORT INFORMATION
  Report Type: 
  Country: None (occurrence: None)
  Receive Date: 20060428
  Receipt Date: 20060417
  Transmission Date: 20061013
  Serious: Yes (Hospitalization, Other)
  Sender: FDA-Public Use
  Company Number: US_0509122410

PATIENT
  Age: 42 Year
  Sex: Female
  Weight: 120.2 kg

DRUGS (7)
  1. ZYPREXA [Suspect]
     Dosage: 10 MG, DAILY (1/D), ORAL
     Route: 048
     Dates: start: 20030101, end: 20041114
  2. PROZAC [Concomitant]
  3. ABILIFY [Concomitant]
  4. RISPERDAL [Concomitant]
  5. KLONOPIN [Concomitant]
  6. CELEXA [Concomitant]
  7. REMERON [Concomitant]

REACTIONS (6)
  - DIABETES MELLITUS NON-INSULIN-DEPENDENT [None]
  - FALL [None]
  - HEAD INJURY [None]
  - HYPERGLYCAEMIA [None]
  - MENORRHAGIA [None]
  - SYNCOPE [None]
